FAERS Safety Report 5452472-1 (Version None)
Quarter: 2007Q3

REPORT INFORMATION
  Report Type: 
  Country: None (occurrence: None)
  Receive Date: 20070803
  Receipt Date: 20070102
  Transmission Date: 20080115
  Serious: Yes (Disabling, Other)
  Sender: FDA-Public Use
  Company Number: 2003-08-1134

PATIENT
  Age: 46 Year
  Sex: Male
  Weight: 63.9572 kg

DRUGS (16)
  1. INTRON A [Suspect]
     Indication: MALIGNANT MELANOMA
     Dosage: 36 MIU; IV;  18 MIU; SC;  12 MI; SC
     Route: 058
     Dates: start: 20020930, end: 20021024
  2. INTRON A [Suspect]
     Indication: MALIGNANT MELANOMA
     Dosage: 36 MIU; IV;  18 MIU; SC;  12 MI; SC
     Route: 058
     Dates: start: 20021104, end: 20021124
  3. INTRON A [Suspect]
     Indication: MALIGNANT MELANOMA
     Dosage: 36 MIU; IV;  18 MIU; SC;  12 MI; SC
     Route: 058
     Dates: start: 20021125, end: 20030616
  4. LIPITOR [Concomitant]
  5. VIAGRA [Concomitant]
  6. AMBIEN [Concomitant]
  7. PROCHLORPERAZINE [Concomitant]
  8. ZOLOFT [Concomitant]
  9. INDOMETHACIN [Concomitant]
  10. HYDROXYZINE [Concomitant]
  11. ULTRAM [Concomitant]
  12. NEURONTIN [Concomitant]
  13. MARINOL [Concomitant]
  14. HUMALOG [Concomitant]
  15. LANTUS [Concomitant]
  16. TARTRATE [Concomitant]

REACTIONS (5)
  - DIABETIC RETINOPATHY [None]
  - PHOTOPHOBIA [None]
  - THROMBOSIS [None]
  - VISION BLURRED [None]
  - VISUAL ACUITY REDUCED [None]
